FAERS Safety Report 17293554 (Version 2)
Quarter: 2020Q1

REPORT INFORMATION
  Report Type: Spontaneous
  Country: DE (occurrence: DE)
  Receive Date: 20200121
  Receipt Date: 20200127
  Transmission Date: 20200409
  Serious: Yes (Other)
  Sender: FDA-Public Use
  Company Number: NVSC2020DE013801

PATIENT
  Age: 55 Year

DRUGS (7)
  1. DOCETAXEL. [Suspect]
     Active Substance: DOCETAXEL
     Dosage: UNK (SECOND-LINE THERAPY)
     Route: 065
     Dates: start: 20190912, end: 20191007
  2. NINTEDANIB [Suspect]
     Active Substance: NINTEDANIB
     Indication: LUNG NEOPLASM MALIGNANT
     Dosage: UNK (2 CYCLES, SECOND-LINE THERAPY)
     Route: 065
     Dates: start: 20180123, end: 20180213
  3. DOCETAXEL. [Suspect]
     Active Substance: DOCETAXEL
     Indication: LUNG NEOPLASM MALIGNANT
     Dosage: UNK (2 CYCLES, SECOND-LINE THERAPY   )
     Route: 065
     Dates: start: 20180123, end: 20180213
  4. NINTEDANIB [Suspect]
     Active Substance: NINTEDANIB
     Dosage: UNK (SECOND-LINE THERAPY   )
     Route: 065
     Dates: start: 20190912, end: 20191007
  5. PEMETREXED DISODIUM [Suspect]
     Active Substance: PEMETREXED DISODIUM
     Indication: LUNG NEOPLASM MALIGNANT
     Dosage: UNK (FIRST-LINE THERAPY)
     Route: 065
  6. PEMBROLIZUMAB. [Suspect]
     Active Substance: PEMBROLIZUMAB
     Indication: LUNG NEOPLASM MALIGNANT
     Dosage: UNK (FIRST-LINE THERAPY)
     Route: 065
  7. CARBOPLATIN. [Suspect]
     Active Substance: CARBOPLATIN
     Indication: LUNG NEOPLASM MALIGNANT
     Dosage: UNK (FIRST-LINE THERAPY)
     Route: 065

REACTIONS (2)
  - Neuropathy peripheral [Unknown]
  - Malignant neoplasm progression [Unknown]

NARRATIVE: CASE EVENT DATE: 2018
